FAERS Safety Report 21813347 (Version 1)
Quarter: 2023Q1

REPORT INFORMATION
  Report Type: Spontaneous
  Country: US (occurrence: US)
  Receive Date: 20230103
  Receipt Date: 20230103
  Transmission Date: 20230418
  Serious: Yes (Other)
  Sender: FDA-Public Use
  Company Number: US-JNJFOC-20221263364

PATIENT
  Age: 70 Year
  Sex: Male
  Weight: 84.444 kg

DRUGS (1)
  1. REMICADE [Suspect]
     Active Substance: INFLIXIMAB
     Indication: Product used for unknown indication
     Dosage: 6 VIALS
     Route: 041
     Dates: start: 202106

REACTIONS (2)
  - Infusion related reaction [Recovering/Resolving]
  - Hypotension [Recovering/Resolving]
